FAERS Safety Report 24460606 (Version 1)
Quarter: 2024Q4

REPORT INFORMATION
  Report Type: Report from Study
  Country: US (occurrence: US)
  Receive Date: 20241018
  Receipt Date: 20241018
  Transmission Date: 20250115
  Serious: No
  Sender: ROCHE
  Company Number: US-ROCHE-3559875

PATIENT
  Age: 40 Year
  Sex: Female

DRUGS (2)
  1. RITUXAN [Suspect]
     Active Substance: RITUXIMAB
     Indication: Immune system disorder
     Dosage: INFUSE 1000 MG INTRAVENOUSLY ON DAYS 1 AND DAYS 15 EVERY 6 MONTHS? FREQUENCY TEXT:ON DAYS 1 AND DAYS
     Route: 042
  2. RITUXAN [Suspect]
     Active Substance: RITUXIMAB
     Indication: Coagulopathy

REACTIONS (2)
  - Pain [Unknown]
  - Paraesthesia [Unknown]
